FAERS Safety Report 13772588 (Version 1)
Quarter: 2017Q3

REPORT INFORMATION
  Report Type: Spontaneous
  Country: AR (occurrence: AR)
  Receive Date: 20170720
  Receipt Date: 20170720
  Transmission Date: 20171127
  Serious: Yes (Other)
  Sender: FDA-Public Use
  Company Number: AR-BAYER-2017-134414

PATIENT
  Age: 58 Year
  Sex: Female

DRUGS (8)
  1. STIVARGA [Suspect]
     Active Substance: REGORAFENIB
     Dosage: 160 MG, DAILY
  2. STIVARGA [Suspect]
     Active Substance: REGORAFENIB
     Dosage: 120 MG, DAILY
  3. STIVARGA [Suspect]
     Active Substance: REGORAFENIB
     Dosage: 80 MG, DAILY
  4. STIVARGA [Suspect]
     Active Substance: REGORAFENIB
     Dosage: 120 MG, DAILY
  5. STIVARGA [Suspect]
     Active Substance: REGORAFENIB
     Dosage: 160 MG, DAILY
  6. STIVARGA [Suspect]
     Active Substance: REGORAFENIB
     Dosage: 120 MG, DAILY
     Dates: start: 201702
  7. STIVARGA [Suspect]
     Active Substance: REGORAFENIB
     Dosage: 120 MG, QD
     Dates: start: 201611
  8. STIVARGA [Suspect]
     Active Substance: REGORAFENIB
     Dosage: 80 MG, DAILY

REACTIONS (18)
  - Disease progression [Unknown]
  - Palmar-plantar erythrodysaesthesia syndrome [Recovered/Resolved]
  - Aspartate aminotransferase increased [Recovered/Resolved]
  - Diarrhoea [None]
  - Hepatic lesion [Unknown]
  - Gastric cancer [Unknown]
  - Dysphonia [Recovered/Resolved]
  - Alanine aminotransferase increased [Recovered/Resolved]
  - Tumour marker abnormal [Unknown]
  - Hypertension [Recovered/Resolved]
  - Palmar-plantar erythrodysaesthesia syndrome [Recovered/Resolved]
  - Hypertension [Unknown]
  - Toxicity to various agents [None]
  - Metastases to lung [Unknown]
  - Asthenia [None]
  - Asthenia [Recovered/Resolved]
  - Toxicity to various agents [Recovered/Resolved]
  - Dysphonia [Recovered/Resolved]

NARRATIVE: CASE EVENT DATE: 201611
